FAERS Safety Report 10272818 (Version 1)
Quarter: 2014Q2

REPORT INFORMATION
  Report Type: Spontaneous
  Country: KR (occurrence: None)
  Receive Date: 20140627
  Receipt Date: 20140627
  Transmission Date: 20141212
  Serious: Yes (Death, Hospitalization, Other)
  Sender: FDA-Public Use
  Company Number: 2014KP00574

PATIENT
  Sex: 0

DRUGS (2)
  1. GEMCITABINE [Suspect]
     Indication: NON-SMALL CELL LUNG CANCER
     Dosage: ON DAY 1 AND DAY 8 OF A 3 WEEK
     Route: 042
  2. GENEXOL-PM [Suspect]
     Indication: NON-SMALL CELL LUNG CANCER
     Dosage: ON DAY 1

REACTIONS (2)
  - Cerebral infarction [None]
  - Pneumonia [None]
